FAERS Safety Report 8785621 (Version 1)
Quarter: 2012Q4

REPORT INFORMATION
  Report Type: 
  Country: US (occurrence: US)
  Receive Date: 20120914
  Receipt Date: 20120914
  Transmission Date: 20130627
  Serious: Yes (Hospitalization)
  Sender: FDA-Public Use
  Company Number: US-EISAI INC-E7273-00336-SPO-US

PATIENT
  Age: 68 Year
  Sex: Male

DRUGS (1)
  1. TARGRETIN [Suspect]
     Indication: MYCOSIS FUNGOIDES
     Route: 048
     Dates: start: 2006, end: 201104

REACTIONS (2)
  - Pneumonia [Recovered/Resolved]
  - CD4 lymphocytes decreased [Not Recovered/Not Resolved]
